FAERS Safety Report 14814465 (Version 4)
Quarter: 2018Q3

REPORT INFORMATION
  Report Type: Other
  Country: US (occurrence: US)
  Receive Date: 20180426
  Receipt Date: 20180710
  Transmission Date: 20181010
  Serious: Yes (Death, Life-Threatening, Hospitalization)
  Sender: FDA-Public Use
  Company Number: US-ACORDA-ACO_149154_2018

PATIENT
  Age: 56 Year
  Sex: Male

DRUGS (2)
  1. AMPYRA [Suspect]
     Active Substance: DALFAMPRIDINE
     Indication: MULTIPLE SCLEROSIS
     Dosage: 10 MG, BID
     Route: 048
     Dates: start: 20160719, end: 20180413
  2. AMPYRA [Suspect]
     Active Substance: DALFAMPRIDINE
     Dosage: 10 MG, BID
     Route: 048
     Dates: start: 20180227

REACTIONS (2)
  - Death [Fatal]
  - Ill-defined disorder [Unknown]

NARRATIVE: CASE EVENT DATE: 20180413
